FAERS Safety Report 21131551 (Version 1)
Quarter: 2022Q3

REPORT INFORMATION
  Report Type: Spontaneous
  Country: US (occurrence: None)
  Receive Date: 20220726
  Receipt Date: 20220726
  Transmission Date: 20221027
  Serious: No
  Sender: FDA-Public Use
  Company Number: None

PATIENT
  Sex: Female

DRUGS (1)
  1. VERZENIO [Suspect]
     Active Substance: ABEMACICLIB
     Indication: Breast cancer female
     Dosage: 150MG TWICE DAILY ORAL?
     Route: 048
     Dates: start: 20191101

REACTIONS (4)
  - Back pain [None]
  - Back injury [None]
  - Rib fracture [None]
  - Metastases to bone [None]
